FAERS Safety Report 25632447 (Version 3)
Quarter: 2025Q3

REPORT INFORMATION
  Report Type: Spontaneous
  Country: US (occurrence: US)
  Receive Date: 20250801
  Receipt Date: 20250902
  Transmission Date: 20251020
  Serious: No
  Sender: PFIZER
  Company Number: US-PFIZER INC-202500154254

PATIENT
  Age: 5 Year
  Sex: Male
  Weight: 15.329 kg

DRUGS (2)
  1. GENOTROPIN [Suspect]
     Active Substance: SOMATROPIN
     Indication: Silver-Russell syndrome
     Dosage: UNK, 1X/DAY (COMPLETED 8 DOSES SO FAR)
  2. GENOTROPIN [Suspect]
     Active Substance: SOMATROPIN
     Indication: Short stature

REACTIONS (3)
  - Drug dose omission by device [Unknown]
  - Device information output issue [Unknown]
  - Device physical property issue [Unknown]
